FAERS Safety Report 16098139 (Version 1)
Quarter: 2019Q1

REPORT INFORMATION
  Report Type: Spontaneous
  Country: AU (occurrence: AU)
  Receive Date: 20190320
  Receipt Date: 20190320
  Transmission Date: 20190418
  Serious: Yes (Life-Threatening, Other)
  Sender: FDA-Public Use
  Company Number: AU-BAXTER-2019BAX005216

PATIENT
  Sex: Male

DRUGS (11)
  1. PROVIVE 1% [Suspect]
     Active Substance: PROPOFOL
     Indication: SEDATION
     Route: 065
  2. BUPIVACAINE-CLARIS [Suspect]
     Active Substance: BUPIVACAINE HYDROCHLORIDE
     Indication: LOCAL ANAESTHESIA
     Dosage: A TOTAL OF 16 ML OF 0.5 % BUPIVACAINE (80 MG) WAS ADMINISTERED (8 ML ON EACH SIDE)
     Route: 065
  3. FENTANYL. [Concomitant]
     Active Substance: FENTANYL
     Indication: MAINTENANCE OF ANAESTHESIA
     Dosage: SUPPLEMENTAL INTERMITTENT FENTANYL
     Route: 065
  4. CEFAZOLIN [Concomitant]
     Active Substance: CEFAZOLIN
     Indication: ANTIBIOTIC THERAPY
     Route: 042
  5. FENTANYL. [Concomitant]
     Active Substance: FENTANYL
     Indication: INDUCTION OF ANAESTHESIA
     Route: 065
  6. THIOPENTONE [Concomitant]
     Active Substance: THIOPENTAL SODIUM
     Indication: INDUCTION OF ANAESTHESIA
     Route: 065
  7. SEVOFLURANE. [Concomitant]
     Active Substance: SEVOFLURANE
     Indication: INDUCTION OF ANAESTHESIA
     Route: 055
  8. SEVOFLURANE. [Concomitant]
     Active Substance: SEVOFLURANE
     Indication: MAINTENANCE OF ANAESTHESIA
     Route: 055
  9. MIDAZOLAM [Concomitant]
     Active Substance: MIDAZOLAM HYDROCHLORIDE
     Indication: INDUCTION OF ANAESTHESIA
     Route: 065
  10. OXYGEN. [Concomitant]
     Active Substance: OXYGEN
     Indication: INDUCTION OF ANAESTHESIA
     Route: 065
  11. OXYGEN. [Concomitant]
     Active Substance: OXYGEN
     Indication: MAINTENANCE OF ANAESTHESIA

REACTIONS (10)
  - Systemic toxicity [Recovering/Resolving]
  - Bradycardia [Unknown]
  - Myoclonus [Unknown]
  - Tachycardia [None]
  - Obstructive airways disorder [Unknown]
  - Toxicity to various agents [Recovering/Resolving]
  - Ventricular extrasystoles [None]
  - Arrhythmia [Recovering/Resolving]
  - Gastrooesophageal reflux disease [Unknown]
  - Procedural complication [None]
